FAERS Safety Report 13860587 (Version 2)
Quarter: 2018Q3

REPORT INFORMATION
  Report Type: Report from Study
  Country: IT (occurrence: IT)
  Receive Date: 20170811
  Receipt Date: 20180725
  Transmission Date: 20181010
  Serious: Yes (Other)
  Sender: FDA-Public Use
  Company Number: IT-TEVA-794915ACC

PATIENT
  Age: 76 Year
  Sex: Female
  Weight: 70 kg

DRUGS (2)
  1. CARBOPLATINO TEVA ? 15 ML 10 MG/ML ? TEVA PHARMA B.V. [Suspect]
     Active Substance: CARBOPLATIN
     Indication: SMALL CELL LUNG CANCER
     Dosage: 265 MG CYCLICAL
     Route: 042
     Dates: start: 20170620, end: 20170711
  2. ETOPOSIDE SANDOZ ? 20 MG/ML CONCENTRATO PER SOLUZIONE PER INFUSIONE [Suspect]
     Active Substance: ETOPOSIDE
     Indication: SMALL CELL LUNG CANCER
     Dosage: 95 MG CYCLICAL
     Route: 042
     Dates: start: 20170620, end: 20170711

REACTIONS (4)
  - Dyspnoea [Recovered/Resolved]
  - Oxygen saturation decreased [Recovered/Resolved]
  - Feeling hot [Recovered/Resolved]
  - Hyperhidrosis [Recovered/Resolved]

NARRATIVE: CASE EVENT DATE: 20170711
